FAERS Safety Report 10020954 (Version 2)
Quarter: 2014Q2

REPORT INFORMATION
  Report Type: Report from Study
  Country: CA (occurrence: CA)
  Receive Date: 20140319
  Receipt Date: 20140422
  Transmission Date: 20141212
  Serious: Yes (Hospitalization)
  Sender: FDA-Public Use
  Company Number: CA-JNJFOC-20140309292

PATIENT
  Age: 65 Year
  Sex: Male
  Weight: 82.56 kg

DRUGS (6)
  1. REMICADE [Suspect]
     Indication: CROHN^S DISEASE
     Route: 042
  2. REMICADE [Suspect]
     Indication: CROHN^S DISEASE
     Route: 042
  3. SINEMET [Concomitant]
     Route: 048
  4. SINEMET [Concomitant]
     Route: 048
  5. SALOFALK [Concomitant]
     Route: 054
  6. OMEPRAZOLE [Concomitant]
     Route: 065

REACTIONS (6)
  - Infection [Recovering/Resolving]
  - Unevaluable event [Recovering/Resolving]
  - Pain [Recovering/Resolving]
  - Nasopharyngitis [Recovered/Resolved]
  - Drug ineffective [Recovering/Resolving]
  - Oropharyngeal pain [Recovered/Resolved]
